FAERS Safety Report 8794314 (Version 1)
Quarter: 2012Q4

REPORT INFORMATION
  Report Type: 
  Country: TW (occurrence: TW)
  Receive Date: 20120917
  Receipt Date: 20120917
  Transmission Date: 20130627
  Serious: Yes (Other)
  Sender: FDA-Public Use
  Company Number: PHHY2012TW079500

PATIENT
  Age: 76 Year
  Sex: Female

DRUGS (3)
  1. ZOLEDRONIC ACID [Suspect]
     Indication: OSTEOPOROSIS
     Dosage: 5 mg/100 mL
     Route: 042
     Dates: start: 200902
  2. ZOLEDRONIC ACID [Suspect]
     Dosage: 5 mg/100 mL
     Route: 042
     Dates: start: 201002
  3. LOCAL ANAESTHETICS [Concomitant]

REACTIONS (8)
  - Osteonecrosis of jaw [Unknown]
  - Impaired healing [Unknown]
  - Purulent discharge [Unknown]
  - Gingival swelling [Unknown]
  - Gingival erythema [Unknown]
  - Bone deformity [Unknown]
  - Toothache [Unknown]
  - Pain in jaw [Unknown]
